FAERS Safety Report 14577572 (Version 1)
Quarter: 2018Q1

REPORT INFORMATION
  Report Type: Spontaneous
  Country: FR (occurrence: FR)
  Receive Date: 20180227
  Receipt Date: 20180227
  Transmission Date: 20180509
  Serious: Yes (Death)
  Sender: FDA-Public Use
  Company Number: FR-TEVA-2018-FR-860277

PATIENT
  Age: 83 Year
  Sex: Male
  Weight: 50 kg

DRUGS (11)
  1. KARDEGIC [Suspect]
     Active Substance: ASPIRIN DL-LYSINE
     Indication: PROPHYLAXIS
     Route: 048
     Dates: end: 20170820
  2. GAZYVARO 1000 MG [Suspect]
     Active Substance: OBINUTUZUMAB
     Indication: CHRONIC LYMPHOCYTIC LEUKAEMIA
     Dosage: CONCENTRATE FOR SOLUTION FOR INFUSION
     Route: 041
     Dates: start: 20170809, end: 20170809
  3. CALCIPARINE [Concomitant]
     Active Substance: HEPARIN CALCIUM
  4. ESOMEPRAZOLE [Concomitant]
     Active Substance: ESOMEPRAZOLE
  5. CHLORAMINOPHENE 2 MG [Suspect]
     Active Substance: CHLORAMBUCIL
     Indication: CHRONIC LYMPHOCYTIC LEUKAEMIA
     Route: 048
     Dates: start: 20170809, end: 20170809
  6. PARACETAMOL [Concomitant]
     Active Substance: ACETAMINOPHEN
  7. GRANOCYTE [Concomitant]
     Active Substance: LENOGRASTIM
  8. ATENOLOL. [Suspect]
     Active Substance: ATENOLOL
     Indication: HYPERTENSION
     Route: 048
     Dates: end: 20170820
  9. AMLODIPINE [Suspect]
     Active Substance: AMLODIPINE BESYLATE
     Indication: HYPERTENSION
     Route: 048
     Dates: end: 20170820
  10. FUROSEMIDE. [Concomitant]
     Active Substance: FUROSEMIDE
  11. AMIODARONE [Concomitant]
     Active Substance: AMIODARONE

REACTIONS (2)
  - Septic shock [Fatal]
  - Bone marrow failure [Fatal]

NARRATIVE: CASE EVENT DATE: 20170819
